FAERS Safety Report 6662279-5 (Version None)
Quarter: 2010Q1

REPORT INFORMATION
  Report Type: 
  Country: None (occurrence: None)
  Receive Date: 20100331
  Receipt Date: 20100319
  Transmission Date: 20100710
  Serious: Yes (Hospitalization)
  Sender: FDA-Public Use
  Company Number: NO-WYE-H14299110

PATIENT
  Sex: Female

DRUGS (7)
  1. SOMAC [Suspect]
     Indication: GASTRIC ULCER
     Route: 048
     Dates: start: 20091001, end: 20091105
  2. SOMAC [Suspect]
     Indication: GASTRODUODENITIS
  3. LEVOTHYROXINE SODIUM [Concomitant]
     Dosage: UNKNOWN
     Route: 048
  4. PREDNISOLONE [Concomitant]
     Dosage: UNKNOWN
  5. PARACET [Concomitant]
     Dosage: UNKNOWN
     Route: 048
  6. LEVOMEPROMAZINE [Concomitant]
     Dosage: UNKNOWN
  7. FOLIC ACID [Concomitant]
     Dosage: UNKNOWN
     Route: 048

REACTIONS (9)
  - BLISTER [None]
  - GENERAL PHYSICAL HEALTH DETERIORATION [None]
  - GENERALISED ERYTHEMA [None]
  - OEDEMA PERIPHERAL [None]
  - PRURITUS [None]
  - SKIN EXFOLIATION [None]
  - SKIN NECROSIS [None]
  - STAPHYLOCOCCAL SEPSIS [None]
  - WOUND [None]
